FAERS Safety Report 9609348 (Version 4)
Quarter: 2013Q4

REPORT INFORMATION
  Report Type: Report from Study
  Country: JP (occurrence: JP)
  Receive Date: 20131009
  Receipt Date: 20131023
  Transmission Date: 20140711
  Serious: Yes (Death, Hospitalization)
  Sender: FDA-Public Use
  Company Number: JP-JNJFOC-20131003112

PATIENT
  Age: 79 Year
  Sex: Male
  Weight: 36 kg

DRUGS (18)
  1. ABIRATERONE ACETATE [Suspect]
     Route: 048
  2. ABIRATERONE ACETATE [Suspect]
     Indication: PROSTATE CANCER METASTATIC
     Route: 048
     Dates: start: 20121003, end: 20131006
  3. PREDONINE [Suspect]
     Indication: PROSTATE CANCER METASTATIC
     Route: 048
     Dates: start: 20131003, end: 20131006
  4. LOXOPROFEN [Suspect]
     Indication: CANCER PAIN
     Route: 048
     Dates: end: 20131006
  5. WARFARIN [Suspect]
     Indication: THROMBOSIS PROPHYLAXIS
     Route: 048
     Dates: start: 20131003, end: 20131006
  6. FLOMOX [Suspect]
     Indication: CELLULITIS
     Route: 048
     Dates: start: 20131002
  7. CEFAMEZIN [Suspect]
     Indication: CELLULITIS
     Dates: end: 20131006
  8. GASPORT [Concomitant]
     Indication: GASTRITIS PROPHYLAXIS
     Route: 048
     Dates: end: 20131006
  9. MOHRUS [Concomitant]
     Indication: CANCER PAIN
     Route: 062
     Dates: end: 20131006
  10. AMLODIPINE [Concomitant]
     Indication: HYPERTENSION
     Route: 048
     Dates: start: 20130827, end: 20131006
  11. MICARDIS [Concomitant]
     Indication: HYPERTENSION
     Route: 048
     Dates: start: 20121113, end: 20131006
  12. ALFAROL [Concomitant]
     Indication: OSTEOPOROSIS
     Route: 048
     Dates: start: 20130422, end: 20131006
  13. PURSENNID [Concomitant]
     Indication: CONSTIPATION
     Route: 048
     Dates: end: 20131006
  14. PRIMPERAN [Concomitant]
     Indication: VOMITING
     Route: 048
     Dates: end: 20131006
  15. CRAVIT [Concomitant]
     Indication: KERATITIS
     Route: 031
     Dates: end: 20131006
  16. RINDERON-A [Concomitant]
     Indication: CORNEAL TRANSPLANT
     Route: 031
     Dates: end: 20131006
  17. PRANOPROFEN [Concomitant]
     Indication: CORNEAL OPACITY
     Route: 031
     Dates: end: 20131006
  18. ASPARA-K [Concomitant]
     Indication: HYPOKALAEMIA
     Route: 048
     Dates: end: 20131006

REACTIONS (2)
  - Cerebrovascular accident [Fatal]
  - Cellulitis [Recovering/Resolving]
